FAERS Safety Report 23218584 (Version 2)
Quarter: 2023Q4

REPORT INFORMATION
  Report Type: Spontaneous
  Country: JP (occurrence: JP)
  Receive Date: 20231122
  Receipt Date: 20231208
  Transmission Date: 20240109
  Serious: Yes (Hospitalization)
  Sender: FDA-Public Use
  Company Number: JP-Eisai Medical Research-EC-2022-124739

PATIENT
  Age: 46 Year
  Sex: Female
  Weight: 56 kg

DRUGS (10)
  1. LENVIMA [Suspect]
     Active Substance: LENVATINIB
     Indication: Endometrial cancer recurrent
     Route: 048
     Dates: start: 20220627, end: 20220708
  2. LENVIMA [Suspect]
     Active Substance: LENVATINIB
     Route: 048
     Dates: start: 20220712
  3. LENVIMA [Suspect]
     Active Substance: LENVATINIB
     Route: 048
     Dates: start: 202207
  4. LENVIMA [Suspect]
     Active Substance: LENVATINIB
     Route: 048
     Dates: start: 2022, end: 202208
  5. LENVIMA [Suspect]
     Active Substance: LENVATINIB
     Route: 048
     Dates: start: 2022
  6. KEYTRUDA [Suspect]
     Active Substance: PEMBROLIZUMAB
     Indication: Endometrial cancer recurrent
     Route: 041
     Dates: start: 20220627
  7. KEYTRUDA [Suspect]
     Active Substance: PEMBROLIZUMAB
     Dosage: DOSE AND FREQUENCY UNKNOWN
     Route: 041
     Dates: start: 2022
  8. ADRIACIN [Suspect]
     Active Substance: DOXORUBICIN HYDROCHLORIDE
     Indication: Product used for unknown indication
     Dosage: TOTAL DOSE OF 541 (FREQUENCY UNKNOWN)
     Dates: start: 2021
  9. SARS-COV-2 [Suspect]
     Active Substance: SARS-COV-2
     Indication: Product used for unknown indication
     Dosage: DOSE AND FREQUENCY UNKNOWN
     Route: 030
     Dates: start: 202207
  10. LOXOPROFEN SODIUM DIHYDRATE [Concomitant]
     Active Substance: LOXOPROFEN SODIUM DIHYDRATE
     Indication: Product used for unknown indication
     Dosage: DOSE AND FREQUENCY UNKNOWN
     Route: 065
     Dates: start: 20220708

REACTIONS (1)
  - Chronic myocarditis [Recovering/Resolving]

NARRATIVE: CASE EVENT DATE: 20220101
